FAERS Safety Report 20478413 (Version 2)
Quarter: 2022Q1

REPORT INFORMATION
  Report Type: Report from Study
  Country: DE (occurrence: DE)
  Receive Date: 20220216
  Receipt Date: 20220228
  Transmission Date: 20220424
  Serious: Yes (Other)
  Sender: FDA-Public Use
  Company Number: DE-BIOGEN-2022BI01095121

PATIENT
  Sex: Female
  Weight: 95 kg

DRUGS (3)
  1. TYSABRI [Suspect]
     Active Substance: NATALIZUMAB
     Indication: Relapsing-remitting multiple sclerosis
     Dosage: OTHER 2 DOSES WERE TAKEN ON 13 OCT 2021 AND 17 NOV 2021
     Route: 058
     Dates: start: 20210915
  2. TILIDINE [Concomitant]
     Active Substance: TILIDINE
     Indication: Dysaesthesia
     Dosage: ONCE IF REQUIRED
     Route: 048
     Dates: start: 20111014
  3. BROMAZEPAM [Concomitant]
     Active Substance: BROMAZEPAM
     Indication: Abortion
     Dosage: IF REQUIRED
     Route: 065
     Dates: start: 20211206

REACTIONS (2)
  - Abortion spontaneous [Recovered/Resolved]
  - Maternal exposure during pregnancy [Recovered/Resolved]

NARRATIVE: CASE EVENT DATE: 20210101
